FAERS Safety Report 5763725-1 (Version None)
Quarter: 2008Q2

REPORT INFORMATION
  Report Type: 
  Country: None (occurrence: None)
  Receive Date: 20080610
  Receipt Date: 20080603
  Transmission Date: 20081010
  Serious: Yes (Other)
  Sender: FDA-Public Use
  Company Number: US-ROCHE-568359

PATIENT
  Age: 63 Year
  Sex: Female

DRUGS (9)
  1. BONIVA [Suspect]
     Indication: OSTEOPOROSIS
     Route: 042
  2. DRISDOL [Concomitant]
  3. ASPIRIN [Concomitant]
     Dosage: FREQUENCY REPORTED AS: EVERY DAY
  4. ATENOLOL [Concomitant]
  5. CALCIUM [Concomitant]
  6. CRESTOR [Concomitant]
     Dosage: FREQUENCY REPORTED AS: EVERY DAY
  7. NIASPAN [Concomitant]
     Dosage: FREQUENCY REPORTED AS: EVERY DAY
  8. PENTASA [Concomitant]
     Dosage: DRUG REPORTED AS: PENTASSA
     Route: 065
  9. PROTONIX [Concomitant]

REACTIONS (1)
  - ATRIAL FIBRILLATION [None]
